FAERS Safety Report 12644244 (Version 19)
Quarter: 2017Q4

REPORT INFORMATION
  Report Type: Spontaneous
  Country: AU (occurrence: AU)
  Receive Date: 20160811
  Receipt Date: 20171109
  Transmission Date: 20180320
  Serious: Yes (Life-Threatening, Hospitalization, Other)
  Sender: FDA-Public Use
  Company Number: AU-PFIZER INC-2016369001

PATIENT
  Age: 53 Year
  Sex: Male

DRUGS (13)
  1. ATORVASTATIN CALCIUM. [Suspect]
     Active Substance: ATORVASTATIN CALCIUM
     Dosage: 280 MG, UNK, (7 X 40 MG(280 MG))
     Route: 065
  2. APIXABAN [Suspect]
     Active Substance: APIXABAN
     Indication: ATRIAL FIBRILLATION
  3. PHENYLEPHRINE [Suspect]
     Active Substance: PHENYLEPHRINE\PHENYLEPHRINE HYDROCHLORIDE
     Dosage: 5 MG, UNK
  4. CODEINE PHOSPHATE W/PARACETAMOL/PHENYLEPHRINE [Suspect]
     Active Substance: ACETAMINOPHEN\CODEINE\PHENYLEPHRINE
     Dosage: 1 DF = 500MG PARACETAMOL/9.5MG CODEINE/5MG PHENYLEPHRINE
     Route: 065
  5. APIXABAN [Suspect]
     Active Substance: APIXABAN
     Indication: CEREBROVASCULAR ACCIDENT PROPHYLAXIS
     Dosage: 200 MG, UNK, (40 X 5 MG (200 MG))
     Route: 048
  6. MAGNESIUM SULFATE. [Suspect]
     Active Substance: MAGNESIUM SULFATE
     Dosage: 37.4 MG, UNK, (10 X 3.74MG (37.4MG))
     Route: 065
  7. PARACETAMOL [Suspect]
     Active Substance: ACETAMINOPHEN
     Dosage: 2000 MG, UNK, (4 X 500MG)
  8. BISOPROLOL FUMARATE. [Suspect]
     Active Substance: BISOPROLOL FUMARATE
     Dosage: 105 MG, UNK, (7 X 40MG (280MG))
     Route: 065
  9. RAMIPRIL. [Suspect]
     Active Substance: RAMIPRIL
     Dosage: 35 MG, UNK, (28 X 1.25MG (35MG))
     Route: 065
  10. COLCHICINE. [Suspect]
     Active Substance: COLCHICINE
     Dosage: 6 MG, UNK, (12 X 0.5MG (6MG))
     Route: 065
  11. CODEINE [Suspect]
     Active Substance: CODEINE
     Dosage: 9.5 MG, UNK
  12. PROTHROMBINEX [Concomitant]
     Active Substance: COAGULATION FACTOR IX HUMAN\COAGULATION FACTOR VII HUMAN\COAGULATION FACTOR X HUMAN\PROTHROMBIN
     Dosage: UNK
     Route: 065
  13. VITAMIN K [Concomitant]
     Active Substance: PHYTONADIONE
     Dosage: UNK
     Route: 065

REACTIONS (6)
  - Intentional overdose [Recovered/Resolved]
  - Activated partial thromboplastin time prolonged [Unknown]
  - Hypotension [Recovered/Resolved]
  - International normalised ratio increased [Recovered/Resolved]
  - Poisoning deliberate [Recovered/Resolved]
  - Vascular access site haemorrhage [Recovered/Resolved]
